FAERS Safety Report 15614786 (Version 1)
Quarter: 2018Q4

REPORT INFORMATION
  Report Type: Spontaneous
  Country: US (occurrence: US)
  Receive Date: 20181113
  Receipt Date: 20181113
  Transmission Date: 20190205
  Serious: Yes (Hospitalization, Other)
  Sender: FDA-Public Use
  Company Number: US-ROCHE-2212806

PATIENT
  Sex: Female

DRUGS (6)
  1. NIFEDIPINE. [Concomitant]
     Active Substance: NIFEDIPINE
  2. ONDANSETRON HCL [Concomitant]
     Active Substance: ONDANSETRON HYDROCHLORIDE
  3. ATORVASTATIN CALCIUM. [Concomitant]
     Active Substance: ATORVASTATIN CALCIUM
  4. HERCEPTIN [Suspect]
     Active Substance: TRASTUZUMAB
     Indication: SOFT TISSUE DISORDER
     Route: 042
     Dates: start: 20180221
  5. NAPROSYN [Concomitant]
     Active Substance: NAPROXEN
     Route: 065
  6. MECLIZINE HCL [Concomitant]
     Active Substance: MECLIZINE HYDROCHLORIDE

REACTIONS (3)
  - Off label use [Unknown]
  - Loss of consciousness [Unknown]
  - Intentional product use issue [Unknown]
